FAERS Safety Report 7126541-4 (Version None)
Quarter: 2010Q4

REPORT INFORMATION
  Report Type: 
  Country: None (occurrence: None)
  Receive Date: 20101129
  Receipt Date: 20101122
  Transmission Date: 20110411
  Serious: Yes (Hospitalization)
  Sender: FDA-Public Use
  Company Number: US-US-EMD SERONO, INC.-7029192

PATIENT
  Sex: Female

DRUGS (4)
  1. REBIF [Suspect]
     Indication: MULTIPLE SCLEROSIS
     Route: 058
     Dates: start: 20100415
  2. VERAPAMIL [Concomitant]
     Indication: MIGRAINE
     Dates: end: 20100101
  3. VERAPAMIL [Concomitant]
     Dates: start: 20100101
  4. INSULIN [Concomitant]

REACTIONS (7)
  - ERYTHEMA [None]
  - HYPOTENSION [None]
  - INJECTION SITE PAIN [None]
  - INJECTION SITE REACTION [None]
  - MEMORY IMPAIRMENT [None]
  - MULTIPLE SCLEROSIS RELAPSE [None]
  - URINARY TRACT INFECTION [None]
